FAERS Safety Report 24854725 (Version 7)
Quarter: 2025Q2

REPORT INFORMATION
  Report Type: Report from Study
  Country: CA (occurrence: CA)
  Receive Date: 20250117
  Receipt Date: 20250502
  Transmission Date: 20250716
  Serious: Yes (Hospitalization, Other)
  Sender: EXELIXIS
  Company Number: CA-IPSEN Group, Research and Development-2025-00744

PATIENT
  Age: 61 Year
  Sex: Male
  Weight: 180 kg

DRUGS (10)
  1. CABOMETYX [Suspect]
     Active Substance: CABOZANTINIB S-MALATE
     Indication: Renal cell carcinoma
     Dosage: 20 MG, QD FOR 30 DAYS
     Route: 048
     Dates: start: 20240711
  2. CABOMETYX [Suspect]
     Active Substance: CABOZANTINIB S-MALATE
     Dosage: 20 MG, EVERY OTHER DAY
     Route: 048
     Dates: start: 20241206
  3. CABOMETYX [Suspect]
     Active Substance: CABOZANTINIB S-MALATE
     Route: 065
  4. CABOMETYX [Suspect]
     Active Substance: CABOZANTINIB S-MALATE
     Route: 065
     Dates: start: 20250224
  5. LEVETIRACETAM [Concomitant]
     Active Substance: LEVETIRACETAM
     Dosage: 500 MG, BID
  6. Ranidine [Concomitant]
     Dosage: 150 MG, QD
  7. BISOPROLOL [Concomitant]
     Active Substance: BISOPROLOL
  8. PERINDOPRIL [Concomitant]
     Active Substance: PERINDOPRIL
     Dosage: 4 MG, QD
  9. DEXAMETHASONE [Concomitant]
     Active Substance: DEXAMETHASONE
  10. DEXAMETHASONE [Concomitant]
     Active Substance: DEXAMETHASONE

REACTIONS (13)
  - Neuropathy peripheral [Unknown]
  - Influenza [Not Recovered/Not Resolved]
  - Immunodeficiency [Unknown]
  - Cataract [Unknown]
  - Eating disorder [Unknown]
  - Taste disorder [Unknown]
  - Nausea [Unknown]
  - Taste disorder [Unknown]
  - Parosmia [Unknown]
  - Parosmia [Unknown]
  - Off label use [Unknown]
  - Off label use [Unknown]
  - Off label use [Unknown]

NARRATIVE: CASE EVENT DATE: 20241206
